FAERS Safety Report 9507954 (Version 1)
Quarter: 2013Q1

REPORT INFORMATION
  Report Type: Spontaneous
  Country: US (occurrence: None)
  Receive Date: 20130305
  Receipt Date: 20130305
  Transmission Date: 20140127
  Serious: Yes (Hospitalization, Other)
  Sender: FDA-Public Use
  Company Number: 163-21880-12021594

PATIENT
  Age: 79 Year
  Sex: Male

DRUGS (7)
  1. REVLIMID [Suspect]
     Indication: PLASMA CELL MYELOMA
     Dosage: 1 IN 1 D
     Route: 048
     Dates: start: 20061019
  2. TAMSULOSIN HCL (TAMSULOSIN HYDROCHLORIDE) [Concomitant]
  3. OMEPRAZOLE (OMEPRAZOLE) [Concomitant]
  4. DEXAMETHASONE (DEXAMETHASONE) [Concomitant]
  5. CALCIUM (CALCIUM) [Concomitant]
  6. ALBUTEROL SULFATE (SALBUTAMOL SULFATE) [Concomitant]
  7. ACYCLOVIR (ACICLOVIR) [Concomitant]

REACTIONS (2)
  - Pneumonia [None]
  - White blood cell count decreased [None]
